FAERS Safety Report 8967997 (Version 2)
Quarter: 2013Q1

REPORT INFORMATION
  Report Type: Spontaneous
  Country: US (occurrence: US)
  Receive Date: 20121217
  Receipt Date: 20130124
  Transmission Date: 20140127
  Serious: Yes (Other)
  Sender: FDA-Public Use
  Company Number: US-GLAXOSMITHKLINE-A1005527A

PATIENT
  Age: 60 Year
  Sex: Female
  Weight: 80.9 kg

DRUGS (2)
  1. FLOLAN [Suspect]
     Indication: PRODUCT USED FOR UNKNOWN INDICATION
     Dosage: 27NGKM CONTINUOUS
     Route: 042
     Dates: start: 20000929
  2. FLOLAN [Suspect]
     Route: 042

REACTIONS (5)
  - Device related infection [Unknown]
  - Injection site erythema [Unknown]
  - Leukocytoclastic vasculitis [Unknown]
  - Biopsy skin [Unknown]
  - Rash [Unknown]
